FAERS Safety Report 4489965-X (Version None)
Quarter: 2004Q4

REPORT INFORMATION
  Report Type: 
  Country: None (occurrence: None)
  Receive Date: 20041101
  Receipt Date: 20041020
  Transmission Date: 20050328
  Serious: Yes (Hospitalization)
  Sender: FDA-Public Use
  Company Number: FR-GLAXOSMITHKLINE-B0348819A

PATIENT
  Age: 53 Year
  Sex: Male
  Weight: 60 kg

DRUGS (9)
  1. RETROVIR [Suspect]
     Indication: HIV INFECTION
     Dosage: 50MG TWICE PER DAY
     Route: 048
     Dates: start: 20010101, end: 20040814
  2. ZIAGEN [Suspect]
     Indication: HIV INFECTION
     Dosage: 300MG TWICE PER DAY
     Route: 048
     Dates: start: 20010101, end: 20040814
  3. SUSTIVA [Suspect]
     Indication: HIV INFECTION
     Dosage: 600MG PER DAY
     Route: 048
     Dates: start: 20010101, end: 20040814
  4. LAMIVUDINE [Concomitant]
     Indication: HIV INFECTION
     Dosage: 100MG PER DAY
     Route: 048
     Dates: start: 19970101
  5. HEPSERA [Concomitant]
     Dosage: 10MG PER DAY
     Route: 048
     Dates: start: 20030812, end: 20040712
  6. TRIATEC [Concomitant]
     Indication: HYPERTENSION
     Route: 048
  7. AMLOR [Concomitant]
     Indication: HYPERTENSION
     Dosage: 10MG PER DAY
     Route: 048
  8. SECTRAL [Concomitant]
     Indication: HYPERTENSION
     Route: 048
  9. INSULIN [Concomitant]

REACTIONS (9)
  - ACID BASE BALANCE ABNORMAL [None]
  - FORMICATION [None]
  - MALAISE [None]
  - MITOCHONDRIAL CYTOPATHY [None]
  - MUSCULAR WEAKNESS [None]
  - NEUROPATHY PERIPHERAL [None]
  - PROGRESSIVE MULTIFOCAL LEUKOENCEPHALOPATHY [None]
  - TACHYCARDIA [None]
  - VOMITING [None]
